FAERS Safety Report 5422148-5 (Version None)
Quarter: 2007Q3

REPORT INFORMATION
  Report Type: 
  Country: None (occurrence: None)
  Receive Date: 20070821
  Receipt Date: 20070821
  Transmission Date: 20080115
  Serious: Yes (Other)
  Sender: FDA-Public Use
  Company Number: None

PATIENT
  Sex: Male

DRUGS (7)
  1. REVLIMID [Suspect]
     Indication: MULTIPLE MYELOMA
     Dosage: 10MG QD X 21D/28D PO
     Route: 048
     Dates: start: 20070709, end: 20070731
  2. WARFARIN [Concomitant]
  3. PROPRANOLOL [Concomitant]
  4. FUROSEMIDE [Concomitant]
  5. METOLAZONE [Concomitant]
  6. POTASSIUM CHLORIDE [Concomitant]
  7. CLONIDINE [Concomitant]

REACTIONS (4)
  - COUGH [None]
  - FATIGUE [None]
  - GOUT [None]
  - RASH MACULAR [None]
